FAERS Safety Report 5484141-6 (Version None)
Quarter: 2007Q4

REPORT INFORMATION
  Report Type: 
  Country: None (occurrence: None)
  Receive Date: 20071009
  Receipt Date: 20071009
  Transmission Date: 20080405
  Serious: Yes (Hospitalization)
  Sender: FDA-Public Use
  Company Number: None

PATIENT
  Age: 54 Year
  Sex: Female
  Weight: 55.3388 kg

DRUGS (9)
  1. CISPLATIN [Suspect]
     Dosage: 35MG/M2, IV WKLY
     Route: 042
     Dates: start: 20071003
  2. ERBITUX [Suspect]
     Indication: NEOPLASM MALIGNANT
     Dosage: 250MG/M2, IV WKLY
     Route: 042
  3. RADIATION THERAPY [Suspect]
     Dosage: DAILY
     Dates: end: 20071009
  4. COLACE [Concomitant]
  5. PROTONIX [Concomitant]
  6. FENTANYL [Concomitant]
  7. OXYCODONE HCL [Concomitant]
  8. LIDOCAINE HCL VISCOUS [Concomitant]
  9. MAGNESIUM OXIDE [Concomitant]

REACTIONS (2)
  - NAUSEA [None]
  - VOMITING [None]
